FAERS Safety Report 4883862-3 (Version None)
Quarter: 2006Q1

REPORT INFORMATION
  Report Type: 
  Country: None (occurrence: None)
  Receive Date: 20060113
  Receipt Date: 20051228
  Transmission Date: 20060701
  Serious: Yes (Other)
  Sender: FDA-Public Use
  Company Number: US_0508121213

PATIENT
  Age: 73 Year
  Sex: Male

DRUGS (4)
  1. GEMZAR [Suspect]
     Indication: PANCREATIC CARCINOMA
     Dates: start: 20040901
  2. CARDIZEM   /00489701/ (DILTIAZEM) [Concomitant]
  3. ANTIEMETIC MEDICATION [Concomitant]
  4. DECADRON [Concomitant]

REACTIONS (2)
  - BLOOD GLUCOSE INCREASED [None]
  - THIRST [None]
